APPROVED DRUG PRODUCT: BEXAROTENE
Active Ingredient: BEXAROTENE
Strength: 75MG
Dosage Form/Route: CAPSULE;ORAL
Application: A210352 | Product #001
Applicant: CIPLA LTD
Approved: Dec 10, 2024 | RLD: No | RS: No | Type: DISCN